FAERS Safety Report 7389672-X (Version None)
Quarter: 2011Q2

REPORT INFORMATION
  Report Type: 
  Country: None (occurrence: None)
  Receive Date: 20110401
  Receipt Date: 20110328
  Transmission Date: 20111010
  Serious: Yes (Hospitalization)
  Sender: FDA-Public Use
  Company Number: JP-MERCK-1103USA03812

PATIENT
  Age: 84 Year
  Sex: Male

DRUGS (1)
  1. JANUVIA [Suspect]
     Indication: HYPERGLYCAEMIA
     Route: 048
     Dates: start: 20100501

REACTIONS (1)
  - FEMORAL NECK FRACTURE [None]
